FAERS Safety Report 5751187-X (Version None)
Quarter: 2008Q2

REPORT INFORMATION
  Report Type: 
  Country: None (occurrence: None)
  Receive Date: 20080528
  Receipt Date: 20071206
  Transmission Date: 20081010
  Serious: No
  Sender: FDA-Public Use
  Company Number: US-BOEHRINGER INGELHEIM GMBH, GERMANY-2007-BP-02351BP

PATIENT
  Sex: Male
  Weight: 61 kg

DRUGS (18)
  1. MIRAPEX [Suspect]
     Indication: PARKINSON'S DISEASE
     Dates: start: 19980106, end: 20051228
  2. SINEMET [Concomitant]
     Indication: PARKINSON'S DISEASE
     Dates: start: 19990101
  3. CARDURA [Concomitant]
     Indication: PROSTATISM
     Dates: start: 19970101
  4. ASPIRIN [Concomitant]
  5. VIOXX [Concomitant]
     Indication: ARTHRALGIA
  6. ELDEPRYL [Concomitant]
     Indication: PARKINSON'S DISEASE
     Dates: start: 20051201
  7. VIAGRA [Concomitant]
     Indication: ERECTILE DYSFUNCTION
     Dates: start: 19980101
  8. CIALIS [Concomitant]
  9. AZILECT [Concomitant]
     Indication: PARKINSON'S DISEASE
  10. DOXAZOSIN MESYLATE [Concomitant]
     Indication: PROSTATOMEGALY
  11. LEVODOPA [Concomitant]
  12. TYLENOL W/ CODEINE NO. 3 [Concomitant]
  13. DARVOCET-N 100 [Concomitant]
  14. VEETIDS [Concomitant]
  15. IBUPROFEN [Concomitant]
  16. DOCUSATE SODIUM [Concomitant]
  17. AMOXICILLIN [Concomitant]
  18. LEVITRA [Concomitant]

REACTIONS (8)
  - DEPRESSION [None]
  - ECONOMIC PROBLEM [None]
  - EMOTIONAL DISTRESS [None]
  - HYPERSEXUALITY [None]
  - INJURY [None]
  - LIBIDO INCREASED [None]
  - OBSESSIVE-COMPULSIVE DISORDER [None]
  - PATHOLOGICAL GAMBLING [None]
